FAERS Safety Report 8990267 (Version 1)
Quarter: 2012Q4

REPORT INFORMATION
  Report Type: 
  Country: CH (occurrence: CH)
  Receive Date: 20121228
  Receipt Date: 20121228
  Transmission Date: 20130627
  Serious: Yes (Hospitalization)
  Sender: FDA-Public Use
  Company Number: CH-NOVOPROD-367539

PATIENT
  Age: 59 Year
  Sex: Female
  Weight: 104.5 kg

DRUGS (6)
  1. VICTOZA [Suspect]
     Indication: OBESITY
     Dosage: UNK
     Route: 058
     Dates: start: 201207, end: 201210
  2. LIVIAL [Concomitant]
     Dosage: UNK
     Route: 048
     Dates: start: 2009, end: 20121127
  3. FLUCTINE [Concomitant]
     Dosage: 5 mg, qd
     Route: 048
     Dates: start: 2009, end: 20121127
  4. BILOL [Concomitant]
     Dosage: 5 mg, qd
     Route: 048
     Dates: start: 2009, end: 20121127
  5. KINZAL [Concomitant]
     Route: 048
     Dates: start: 2009, end: 20091127
  6. CRESTOR [Concomitant]
     Dosage: 10 mg, qd
     Route: 048
     Dates: start: 2009, end: 20121127

REACTIONS (6)
  - Skin necrosis [Not Recovered/Not Resolved]
  - Pain [Unknown]
  - Cyanosis [Not Recovered/Not Resolved]
  - Pancreatic enzymes decreased [Unknown]
  - Weight decreased [Unknown]
  - Diarrhoea [Recovered/Resolved]
